FAERS Safety Report 9486719 (Version 2)
Quarter: 2013Q3

REPORT INFORMATION
  Report Type: Spontaneous
  Country: US (occurrence: US)
  Receive Date: 20130829
  Receipt Date: 20130914
  Transmission Date: 20140515
  Serious: No
  Sender: FDA-Public Use
  Company Number: US-ASTRAZENECA-2013SE56678

PATIENT
  Age: 50 Year
  Sex: Female

DRUGS (1)
  1. SYMBICORT [Suspect]
     Dosage: 160 MCG/4.5 MCG ONE PUFF BID
     Route: 055

REACTIONS (3)
  - Pain [Unknown]
  - Gastric disorder [Unknown]
  - Off label use [Unknown]
